FAERS Safety Report 23175201 (Version 3)
Quarter: 2023Q4

REPORT INFORMATION
  Report Type: Report from Study
  Country: IL (occurrence: IL)
  Receive Date: 20231113
  Receipt Date: 20231120
  Transmission Date: 20240109
  Serious: Yes (Death, Hospitalization)
  Sender: FDA-Public Use
  Company Number: IL-ABBVIE-5487743

PATIENT
  Age: 77 Year
  Sex: Male

DRUGS (2)
  1. CARBIDOPA\LEVODOPA [Suspect]
     Active Substance: CARBIDOPA\LEVODOPA
     Indication: Parkinson^s disease
     Route: 050
     Dates: start: 20180809
  2. CARBIDOPA\LEVODOPA [Suspect]
     Active Substance: CARBIDOPA\LEVODOPA
     Dosage: MORNING DOSE 5ML, CONTINUOUS DOSE 3.3ML/HOUR, EXTRA DOSE 2ML?STOP DATE TEXT: UNKNOWN
     Route: 050
     Dates: end: 20231110

REACTIONS (5)
  - Death [Fatal]
  - Abdominal distension [Recovering/Resolving]
  - Abdominal pain [Recovering/Resolving]
  - Intestinal perforation [Recovering/Resolving]
  - Volvulus [Recovering/Resolving]

NARRATIVE: CASE EVENT DATE: 20231107
